FAERS Safety Report 7388725-X (Version None)
Quarter: 2011Q2

REPORT INFORMATION
  Report Type: 
  Country: None (occurrence: None)
  Receive Date: 20110401
  Receipt Date: 20110328
  Transmission Date: 20111010
  Serious: Yes (Death, Hospitalization)
  Sender: FDA-Public Use
  Company Number: JP-BAYER-200911527BYL

PATIENT
  Sex: Male
  Weight: 46 kg

DRUGS (10)
  1. AMLODIPINE [Concomitant]
     Route: 048
  2. ALDACTONE [Concomitant]
     Indication: BENIGN PROSTATIC HYPERPLASIA
     Dosage: UNKNOWN
     Route: 048
  3. NIFEDIPINE [Concomitant]
     Route: 048
  4. FUROSEMIDE [Concomitant]
     Route: 065
  5. OXYGEN [Concomitant]
     Route: 055
     Dates: start: 20090501
  6. NEXAVAR [Suspect]
     Indication: RENAL CELL CARCINOMA
     Route: 048
     Dates: start: 20080523, end: 20080623
  7. DOXAZOSIN MESYLATE [Concomitant]
     Route: 048
  8. NEXAVAR [Suspect]
     Dosage: 400 MG (DAILY DOSE), , ORAL
     Route: 048
     Dates: start: 20080624, end: 20090204
  9. NEXAVAR [Suspect]
     Dosage: 200 MG (DAILY DOSE), , ORAL
     Route: 048
     Dates: start: 20090215, end: 20090507
  10. DANTRIUM [Concomitant]
     Route: 048

REACTIONS (9)
  - HYPOTHERMIA [None]
  - LIPASE INCREASED [None]
  - HYPOTHYROIDISM [None]
  - RASH [None]
  - BLOOD AMYLASE INCREASED [None]
  - RENAL CELL CARCINOMA [None]
  - HYPERTENSION [None]
  - DIARRHOEA [None]
  - PALMAR-PLANTAR ERYTHRODYSAESTHESIA SYNDROME [None]
